FAERS Safety Report 9095232 (Version 1)
Quarter: 2013Q1

REPORT INFORMATION
  Report Type: Spontaneous
  Country: FR (occurrence: None)
  Receive Date: 20130122
  Receipt Date: 20130122
  Transmission Date: 20140127
  Serious: Yes (Hospitalization)
  Sender: FDA-Public Use
  Company Number: 2013ST000015

PATIENT
  Age: 20 Year
  Sex: Male

DRUGS (5)
  1. OMEPRAZOLE (OMEPRAZOLE) [Suspect]
     Indication: GASTROOESOPHAGEAL REFLUX DISEASE
     Dates: start: 2006, end: 20100730
  2. ESOMEPRAZOLE [Suspect]
     Indication: GASTROOESOPHAGEAL REFLUX DISEASE
  3. MEROPENEM [Concomitant]
  4. TOBRAMYCIN [Concomitant]
  5. TEICOPLANIN [Concomitant]

REACTIONS (2)
  - Septic shock [None]
  - Agranulocytosis [None]
